FAERS Safety Report 6834138-6 (Version None)
Quarter: 2010Q3

REPORT INFORMATION
  Report Type: 
  Country: None (occurrence: None)
  Receive Date: 20100712
  Receipt Date: 20070522
  Transmission Date: 20110219
  Serious: No
  Sender: FDA-Public Use
  Company Number: US-PFIZER INC-2007034764

PATIENT
  Sex: Female
  Weight: 63.636 kg

DRUGS (16)
  1. CHANTIX [Suspect]
     Indication: SMOKING CESSATION THERAPY
     Dates: start: 20070414, end: 20070422
  2. FENTANYL [Concomitant]
  3. MONTELUKAST SODIUM [Concomitant]
  4. PROMETHAZINE [Concomitant]
  5. MELATONIN [Concomitant]
  6. NEXIUM [Concomitant]
  7. LIPITOR [Concomitant]
  8. CYMBALTA [Concomitant]
  9. DICYCLOMINE [Concomitant]
  10. ALL OTHER THERAPEUTIC PRODUCTS [Concomitant]
  11. OTHER HYPNOTICS AND SEDATIVES [Concomitant]
  12. DIAZEPAM [Concomitant]
  13. PARA-SELTZER [Concomitant]
  14. TRAZODONE HYDROCHLORIDE [Concomitant]
  15. ANALGESIC BALM [Concomitant]
  16. CYPROHEPTADINE HCL [Concomitant]

REACTIONS (3)
  - NAUSEA [None]
  - VISION BLURRED [None]
  - WEIGHT DECREASED [None]
